FAERS Safety Report 4874445-X (Version None)
Quarter: 2006Q1

REPORT INFORMATION
  Report Type: 
  Country: None (occurrence: None)
  Receive Date: 20060104
  Receipt Date: 20050913
  Transmission Date: 20060701
  Serious: Yes (Other)
  Sender: FDA-Public Use
  Company Number: DSFSE020050913MD01

PATIENT
  Sex: Female

DRUGS (1)
  1. DERMA-SMOOTHE/FS [Suspect]
     Indication: SEBORRHOEIC DERMATITIS
     Dosage: QD, TOPICAL
     Route: 061
     Dates: start: 20050912

REACTIONS (3)
  - CONJUNCTIVAL HYPERAEMIA [None]
  - EYE IRRITATION [None]
  - LACRIMATION INCREASED [None]
